FAERS Safety Report 24568913 (Version 2)
Quarter: 2024Q4

REPORT INFORMATION
  Report Type: Report from Study
  Country: US (occurrence: US)
  Receive Date: 20241031
  Receipt Date: 20241124
  Transmission Date: 20250115
  Serious: Yes (Hospitalization)
  Sender: BOEHRINGER INGELHEIM
  Company Number: US-BoehringerIngelheim-2024-BI-058547

PATIENT
  Sex: Male

DRUGS (1)
  1. OFEV [Suspect]
     Active Substance: NINTEDANIB
     Indication: Idiopathic pulmonary fibrosis
     Route: 048
     Dates: end: 202410

REACTIONS (5)
  - Haemorrhage [Unknown]
  - Haematochezia [Recovering/Resolving]
  - Haemoglobin decreased [Recovering/Resolving]
  - Diarrhoea [Not Recovered/Not Resolved]
  - Blood iron decreased [Unknown]
